FAERS Safety Report 7715978-8 (Version None)
Quarter: 2011Q3

REPORT INFORMATION
  Report Type: 
  Country: None (occurrence: None)
  Receive Date: 20110822
  Receipt Date: 20110805
  Transmission Date: 20111222
  Serious: Yes (Hospitalization, Other)
  Sender: FDA-Public Use
  Company Number: 2011MA011408

PATIENT
  Age: 91 Year
  Sex: Female

DRUGS (1)
  1. VERAPAMIL HCL [Suspect]
     Indication: ANGINA PECTORIS

REACTIONS (4)
  - CREPITATIONS [None]
  - LINEAR IGA DISEASE [None]
  - ARRHYTHMIA [None]
  - ATRIAL FIBRILLATION [None]
